FAERS Safety Report 12763733 (Version 1)
Quarter: 2016Q3

REPORT INFORMATION
  Report Type: Spontaneous
  Country: US (occurrence: US)
  Receive Date: 20160920
  Receipt Date: 20160920
  Transmission Date: 20161109
  Serious: Yes (Hospitalization)
  Sender: FDA-Public Use
  Company Number: US-ELI_LILLY_AND_COMPANY-US201609006874

PATIENT
  Age: 77 Year
  Sex: Male

DRUGS (25)
  1. PLETAL [Concomitant]
     Active Substance: CILOSTAZOL
  2. IRON [Concomitant]
     Active Substance: IRON
  3. ALBUTEROL                          /00139501/ [Concomitant]
     Active Substance: ALBUTEROL
  4. FINASTERIDE. [Concomitant]
     Active Substance: FINASTERIDE
  5. GABAPENTIN. [Concomitant]
     Active Substance: GABAPENTIN
  6. LISINOPRIL. [Concomitant]
     Active Substance: LISINOPRIL
  7. LANTUS [Concomitant]
     Active Substance: INSULIN GLARGINE
  8. MUCINEX [Concomitant]
     Active Substance: GUAIFENESIN
  9. CLOPIDOGREL [Concomitant]
     Active Substance: CLOPIDOGREL BISULFATE
  10. TAMSULOSIN [Concomitant]
     Active Substance: TAMSULOSIN
  11. FUROSEMIDE. [Concomitant]
     Active Substance: FUROSEMIDE
  12. HYDROCODONE BITARTRATE AND ACETAMINOPHEN [Concomitant]
     Active Substance: ACETAMINOPHEN\HYDROCODONE BITARTRATE
  13. ATORVASTATIN [Concomitant]
     Active Substance: ATORVASTATIN
  14. SPIRIVA [Concomitant]
     Active Substance: TIOTROPIUM BROMIDE MONOHYDRATE
  15. PROVENTIL [Concomitant]
     Active Substance: ALBUTEROL
  16. FLUTICASONE [Concomitant]
     Active Substance: FLUTICASONE\FLUTICASONE PROPIONATE
  17. OMEPRAZOLE. [Concomitant]
     Active Substance: OMEPRAZOLE
  18. VITAMIIN C [Concomitant]
     Active Substance: ASCORBIC ACID
  19. MULTIVITAMIN                       /07504101/ [Concomitant]
     Active Substance: VITAMINS
  20. NIFEDIPINE. [Concomitant]
     Active Substance: NIFEDIPINE
  21. NITROSTAT [Concomitant]
     Active Substance: NITROGLYCERIN
  22. SYMBICORT [Concomitant]
     Active Substance: BUDESONIDE\FORMOTEROL FUMARATE DIHYDRATE
  23. TYLENOL [Concomitant]
     Active Substance: ACETAMINOPHEN
     Indication: ARTHRITIS
  24. ADCIRCA [Suspect]
     Active Substance: TADALAFIL
     Indication: LUNG DISORDER
     Dosage: 40 MG, QD
     Route: 048
     Dates: start: 2015
  25. METOPROLOL. [Concomitant]
     Active Substance: METOPROLOL

REACTIONS (3)
  - Pyrexia [Unknown]
  - Unresponsive to stimuli [Unknown]
  - Vomiting [Unknown]

NARRATIVE: CASE EVENT DATE: 20160831
